FAERS Safety Report 11449579 (Version 1)
Quarter: 2015Q3

REPORT INFORMATION
  Report Type: Spontaneous
  Country: FI (occurrence: FI)
  Receive Date: 20150903
  Receipt Date: 20150903
  Transmission Date: 20151125
  Serious: Yes (Other)
  Sender: FDA-Public Use
  Company Number: FI-ROCHE-1629530

PATIENT
  Age: 77 Year
  Sex: Female

DRUGS (7)
  1. PREDNISOLON [Concomitant]
     Active Substance: PREDNISOLONE
     Route: 065
     Dates: start: 20150821
  2. ZELBORAF [Suspect]
     Active Substance: VEMURAFENIB
     Dosage: 2+2
     Route: 048
     Dates: start: 20150821
  3. ZELBORAF [Suspect]
     Active Substance: VEMURAFENIB
     Dosage: 2+2
     Route: 048
     Dates: start: 20150612, end: 20150624
  4. ZELBORAF [Suspect]
     Active Substance: VEMURAFENIB
     Route: 048
     Dates: start: 201506
  5. PREDNISOLON [Concomitant]
     Active Substance: PREDNISOLONE
     Route: 065
     Dates: start: 20150624
  6. ZELBORAF [Suspect]
     Active Substance: VEMURAFENIB
     Indication: METASTATIC MALIGNANT MELANOMA
     Dosage: 3+3
     Route: 048
     Dates: start: 20150513, end: 20150520
  7. PREDNISOLON [Concomitant]
     Active Substance: PREDNISOLONE
     Route: 065

REACTIONS (3)
  - Pyrexia [Unknown]
  - C-reactive protein increased [Recovered/Resolved]
  - Nasopharyngitis [Unknown]

NARRATIVE: CASE EVENT DATE: 20150520
